FAERS Safety Report 6625727-2 (Version None)
Quarter: 2010Q1

REPORT INFORMATION
  Report Type: 
  Country: None (occurrence: None)
  Receive Date: 20100310
  Receipt Date: 20100224
  Transmission Date: 20100710
  Serious: Yes (Death)
  Sender: FDA-Public Use
  Company Number: CA-JNJFOC-20100302316

PATIENT
  Sex: Female

DRUGS (2)
  1. ULTRAM ER [Suspect]
     Indication: BACK PAIN
  2. TRAMADOL HCL [Suspect]
     Indication: BACK PAIN
     Route: 065

REACTIONS (2)
  - DEATH [None]
  - OVERDOSE [None]
